FAERS Safety Report 4982243-1 (Version None)
Quarter: 2006Q2

REPORT INFORMATION
  Report Type: 
  Country: None (occurrence: None)
  Receive Date: 20060419
  Receipt Date: 20060328
  Transmission Date: 20061013
  Serious: Yes (Other)
  Sender: FDA-Public Use
  Company Number: US200603006782

PATIENT
  Age: 81 Year
  Sex: Female

DRUGS (2)
  1. FORTEO [Suspect]
     Dosage: 20 UG/DAY SUBCUTANEOUS
     Route: 058
     Dates: start: 20060216
  2. FORTEO [Concomitant]

REACTIONS (4)
  - DEVICE RELATED INFECTION [None]
  - NEPHRECTOMY [None]
  - PHARMACEUTICAL PRODUCT COMPLAINT [None]
  - RENAL FAILURE [None]
